FAERS Safety Report 9232243 (Version 2)
Quarter: 2014Q1

REPORT INFORMATION
  Report Type: Spontaneous
  Country: JP (occurrence: JP)
  Receive Date: 20130415
  Receipt Date: 20140122
  Transmission Date: 20141002
  Serious: Yes (Life-Threatening, Hospitalization)
  Sender: FDA-Public Use
  Company Number: JP-AMGEN-JPNSP2013025601

PATIENT
  Sex: 0

DRUGS (2)
  1. VECTIBIX [Suspect]
     Indication: COLON CANCER
     Dosage: UNK
     Route: 041
     Dates: start: 2012
  2. VECTIBIX [Suspect]
     Dosage: UNK
     Route: 041
     Dates: start: 20130206, end: 20130220

REACTIONS (2)
  - Interstitial lung disease [Not Recovered/Not Resolved]
  - Dermatitis acneiform [Unknown]
